FAERS Safety Report 10983133 (Version 1)
Quarter: 2015Q2

REPORT INFORMATION
  Report Type: Spontaneous
  Country: US (occurrence: None)
  Receive Date: 20150402
  Receipt Date: 20150402
  Transmission Date: 20150821
  Serious: Yes (Other)
  Sender: FDA-Public Use
  Company Number: None

PATIENT
  Age: 39 Year
  Sex: Female
  Weight: 61.24 kg

DRUGS (11)
  1. BIOTIN [Concomitant]
     Active Substance: BIOTIN
  2. PREVACID [Concomitant]
     Active Substance: LANSOPRAZOLE
  3. XANAX [Concomitant]
     Active Substance: ALPRAZOLAM
  4. MAGNESIUM [Concomitant]
     Active Substance: MAGNESIUM
  5. FOLIC ACID. [Concomitant]
     Active Substance: FOLIC ACID
  6. NETYVIO [Concomitant]
  7. TRIAMTERONE [Concomitant]
  8. ENTYVIO [Suspect]
     Active Substance: VEDOLIZUMAB
     Indication: CROHN^S DISEASE
     Dosage: AD DIRECTED, INFUSION
     Dates: start: 20141002, end: 20150401
  9. KDUR [Concomitant]
  10. PERCOCET [Concomitant]
     Active Substance: ACETAMINOPHEN\OXYCODONE HYDROCHLORIDE
  11. VIT.B [Concomitant]

REACTIONS (12)
  - Dehydration [None]
  - Abdominal distension [None]
  - Diarrhoea [None]
  - Chest pain [None]
  - Blood potassium decreased [None]
  - Pain in extremity [None]
  - Pollakiuria [None]
  - Depressed level of consciousness [None]
  - Fatigue [None]
  - Back pain [None]
  - Arthralgia [None]
  - Generalised oedema [None]

NARRATIVE: CASE EVENT DATE: 20141201
